FAERS Safety Report 9471414 (Version 1)
Quarter: 2013Q3

REPORT INFORMATION
  Report Type: Spontaneous
  Country: FR (occurrence: FR)
  Receive Date: 20130822
  Receipt Date: 20130822
  Transmission Date: 20140515
  Serious: Yes (Hospitalization)
  Sender: FDA-Public Use
  Company Number: FR-ELI_LILLY_AND_COMPANY-FR201308004786

PATIENT
  Age: 72 Year
  Sex: Male

DRUGS (8)
  1. GEMZAR [Suspect]
     Indication: PANCREATIC CARCINOMA
     Dosage: 1770 MG, UNK
     Route: 042
     Dates: start: 20111127
  2. FUROSEMIDE [Concomitant]
  3. PREVISCAN [Concomitant]
  4. BISOPROLOL [Concomitant]
     Dosage: 5 MG, QD
  5. SEROPLEX [Concomitant]
     Dosage: 10 MG, QD
  6. XANAX [Concomitant]
     Dosage: 0.5 MG, QD
  7. TAHOR [Concomitant]
     Dosage: 80 MG, QD
  8. OGASTRO [Concomitant]
     Dosage: 15 MG, QD

REACTIONS (4)
  - Pleural effusion [Recovered/Resolved]
  - Dyspnoea [Recovered/Resolved]
  - Oedema peripheral [Recovered/Resolved]
  - Cardiac failure [Recovered/Resolved]
